FAERS Safety Report 25830510 (Version 1)
Quarter: 2025Q3

REPORT INFORMATION
  Report Type: Spontaneous
  Country: EU (occurrence: EU)
  Receive Date: 20250922
  Receipt Date: 20250922
  Transmission Date: 20251021
  Serious: Yes (Life-Threatening)
  Sender: CHEPLAPHARM
  Company Number: None

PATIENT
  Age: 42 Year
  Sex: Female

DRUGS (6)
  1. QUETIAPINE [Interacting]
     Active Substance: QUETIAPINE
     Indication: Bipolar disorder
     Dosage: 1 PIECE IN THE EVENING?DAILY DOSE: 200 MILLIGRAM
     Route: 048
     Dates: start: 2011
  2. QUETIAPINE FUMARATE [Interacting]
     Active Substance: QUETIAPINE FUMARATE
     Indication: Bipolar disorder
     Dosage: 1 PIECE IN THE EVENING?DAILY DOSE: 50 MILLIGRAM
     Route: 048
     Dates: start: 2011
  3. BUSPIRONE HYDROCHLORIDE [Interacting]
     Active Substance: BUSPIRONE HYDROCHLORIDE
     Indication: Bipolar disorder
     Dosage: 6 X 5MG DIVIDED EVENLY THROUGHOUT THE DAY?DAILY DOSE: 30 MILLIGRAM
     Route: 048
     Dates: start: 2013
  4. MIRENA [Suspect]
     Active Substance: LEVONORGESTREL
     Indication: Heavy menstrual bleeding
     Route: 067
     Dates: end: 202506
  5. CIPRALEX [Concomitant]
     Active Substance: ESCITALOPRAM OXALATE
     Indication: Depression
     Dosage: 1 PIECE IN THE MORNING?DAILY DOSE: 20 MILLIGRAM
     Route: 048
     Dates: start: 2003
  6. LEVOTHYROXINE [Concomitant]
     Active Substance: LEVOTHYROXINE
     Indication: Hypothyroidism
     Dosage: 2 TBL IN THE MORNING?DAILY DOSE: 200 MICROGRAM
     Route: 048
     Dates: start: 1997

REACTIONS (10)
  - Feeling abnormal [Recovered/Resolved]
  - Middle insomnia [Recovered/Resolved]
  - Hypomania [Recovered/Resolved]
  - Nervousness [Recovered/Resolved]
  - Nocturnal fear [Recovered/Resolved]
  - Anxiety [Recovered/Resolved]
  - Suicidal ideation [Recovered/Resolved]
  - Mood altered [Recovered/Resolved]
  - Drug interaction [Recovered/Resolved]
  - Depression [Recovered/Resolved]

NARRATIVE: CASE EVENT DATE: 20250601
